FAERS Safety Report 24878677 (Version 2)
Quarter: 2025Q1

REPORT INFORMATION
  Report Type: Report from Study
  Country: US (occurrence: US)
  Receive Date: 20250123
  Receipt Date: 20250203
  Transmission Date: 20250409
  Serious: Yes (Other)
  Sender: ACADIA PHARMACEUTICALS
  Company Number: US-ACADIA PHARMACEUTICALS INC.-ACA-2025-PIM-000448

PATIENT
  Sex: Female

DRUGS (3)
  1. NUPLAZID [Interacting]
     Active Substance: PIMAVANSERIN TARTRATE
     Indication: Parkinson^s disease
     Dosage: 34 MILLIGRAM, QD
     Route: 048
     Dates: start: 202303
  2. CIPRO [Interacting]
     Active Substance: CIPROFLOXACIN HYDROCHLORIDE
     Indication: Urinary tract infection
     Route: 065
  3. MEMANTINE [Concomitant]
     Active Substance: MEMANTINE

REACTIONS (7)
  - Mental impairment [Unknown]
  - Electrocardiogram QT prolonged [Unknown]
  - Urinary tract infection [Unknown]
  - Behaviour disorder [Unknown]
  - Drug interaction [Unknown]
  - Decreased appetite [Unknown]
  - Nausea [Unknown]
